FAERS Safety Report 7357365-0 (Version None)
Quarter: 2011Q1

REPORT INFORMATION
  Report Type: 
  Country: None (occurrence: None)
  Receive Date: 20110311
  Receipt Date: 20110311
  Transmission Date: 20110831
  Serious: No
  Sender: FDA-Public Use
  Company Number: None

PATIENT
  Age: 89 Year
  Sex: Male
  Weight: 76 kg

DRUGS (1)
  1. CYCLOBENZAPRINE [Suspect]
     Indication: BACK PAIN
     Dosage: 5 MG BID PO
     Route: 048
     Dates: start: 20100330, end: 20100404

REACTIONS (8)
  - CHRONIC OBSTRUCTIVE PULMONARY DISEASE [None]
  - CONFUSIONAL STATE [None]
  - TROPONIN INCREASED [None]
  - HALLUCINATION [None]
  - FALL [None]
  - PNEUMONIA [None]
  - MYOCARDIAL INFARCTION [None]
  - RENAL FAILURE ACUTE [None]
